FAERS Safety Report 18225428 (Version 1)
Quarter: 2020Q3

REPORT INFORMATION
  Report Type: Spontaneous
  Country: US (occurrence: US)
  Receive Date: 20200903
  Receipt Date: 20200903
  Transmission Date: 20201103
  Serious: Yes (Other)
  Sender: FDA-Public Use
  Company Number: US-PFIZER INC-2020335502

PATIENT
  Age: 85 Year
  Sex: Female
  Weight: 63.96 kg

DRUGS (5)
  1. KEYTRUDA [Concomitant]
     Active Substance: PEMBROLIZUMAB
     Indication: RENAL CANCER
     Dosage: UNK
     Dates: start: 201407
  2. INLYTA [Suspect]
     Active Substance: AXITINIB
     Dosage: UNK (HALF A DOSE)
     Dates: start: 201408
  3. INLYTA [Suspect]
     Active Substance: AXITINIB
     Indication: RENAL CANCER
     Dosage: UNK
     Dates: start: 201407
  4. INLYTA [Suspect]
     Active Substance: AXITINIB
     Dosage: 5 MG, 2X/DAY
     Dates: start: 20200718
  5. KEYTRUDA [Concomitant]
     Active Substance: PEMBROLIZUMAB
     Dosage: UNK
     Dates: start: 202007

REACTIONS (21)
  - Wrong technique in product usage process [Unknown]
  - Memory impairment [Recovering/Resolving]
  - Lacrimation increased [Unknown]
  - Dysphonia [Unknown]
  - Vomiting [Recovered/Resolved]
  - Musculoskeletal disorder [Unknown]
  - Weight decreased [Unknown]
  - Mental impairment [Unknown]
  - Headache [Not Recovered/Not Resolved]
  - Decreased appetite [Unknown]
  - Diarrhoea [Recovered/Resolved]
  - Lid sulcus deepened [Unknown]
  - Asthenia [Not Recovered/Not Resolved]
  - Dehydration [Unknown]
  - Stomatitis [Unknown]
  - Confusional state [Unknown]
  - Nausea [Recovered/Resolved]
  - Dizziness [Unknown]
  - Hypersomnia [Unknown]
  - Fatigue [Not Recovered/Not Resolved]
  - Taste disorder [Unknown]

NARRATIVE: CASE EVENT DATE: 2020
